FAERS Safety Report 5480623-1 (Version None)
Quarter: 2007Q4

REPORT INFORMATION
  Report Type: 
  Country: None (occurrence: None)
  Receive Date: 20071004
  Receipt Date: 20071004
  Transmission Date: 20080405
  Serious: Yes (Hospitalization)
  Sender: FDA-Public Use
  Company Number: None

PATIENT
  Sex: Female
  Weight: 39.1 kg

DRUGS (4)
  1. CISPLATIN [Suspect]
     Dosage: 64.44 MG
  2. DOXORUBICIN HYDROCHLORIDE [Suspect]
     Dosage: 58 MG
  3. G-CSF (FILGRASTIM, AMGEN) [Suspect]
     Dosage: 75 MCG
  4. TAXOL [Suspect]
     Dosage: 206.23 MG

REACTIONS (4)
  - ALANINE AMINOTRANSFERASE INCREASED [None]
  - ASPARTATE AMINOTRANSFERASE INCREASED [None]
  - BILIARY COLIC [None]
  - HEPATIC FUNCTION ABNORMAL [None]
